FAERS Safety Report 24992493 (Version 2)
Quarter: 2025Q1

REPORT INFORMATION
  Report Type: Report from Study
  Country: GB (occurrence: GB)
  Receive Date: 20250220
  Receipt Date: 20250226
  Transmission Date: 20250408
  Serious: Yes (Other)
  Sender: ABBVIE
  Company Number: GB-ABBVIE-6138683

PATIENT
  Sex: Female

DRUGS (1)
  1. SKYRIZI [Suspect]
     Active Substance: RISANKIZUMAB-RZAA
     Indication: Product used for unknown indication
     Dosage: 360MG/2.4ML
     Route: 058

REACTIONS (3)
  - Stoma site reaction [Not Recovered/Not Resolved]
  - Pain [Not Recovered/Not Resolved]
  - Stoma site ulcer [Not Recovered/Not Resolved]
